FAERS Safety Report 6998155-8 (Version None)
Quarter: 2010Q3

REPORT INFORMATION
  Report Type: 
  Country: None (occurrence: None)
  Receive Date: 20100920
  Receipt Date: 20090721
  Transmission Date: 20110219
  Serious: Yes (Other)
  Sender: FDA-Public Use
  Company Number: US-ASTRAZENECA-2007UW05812

PATIENT
  Sex: Male
  Weight: 127.9 kg

DRUGS (10)
  1. SEROQUEL [Suspect]
     Route: 048
     Dates: start: 20030101
  2. DIPHENHYDRAMINE HCL [Concomitant]
     Dates: start: 20030101
  3. TRAZODONE HCL [Concomitant]
     Dates: start: 20030101
  4. RISPERIDONE [Concomitant]
     Dates: start: 20030101
  5. IRBESARTAN [Concomitant]
     Route: 048
     Dates: start: 20030101
  6. SIMVASTATIN [Concomitant]
     Dates: start: 20030101
  7. DIVALPROEX SODIUM [Concomitant]
     Dosage: TAKE 1 TABLET IN THE MORNING AND TWO AT BEDTIME
     Route: 048
     Dates: start: 20030930
  8. HCTZ50/TRIAMTERENE 75 [Concomitant]
     Dosage: HCTZ50/TRIAMTERENE 75, TALE 1 TABLET BY MOUTH EVERY DAY
     Route: 048
     Dates: start: 20030930
  9. LORAZEPAM [Concomitant]
     Dosage: 2 TABLETS EVERY DAY
     Route: 048
     Dates: start: 20030930
  10. PAROXETINE HCL [Concomitant]
     Route: 048
     Dates: start: 20030930

REACTIONS (4)
  - DIABETES MELLITUS [None]
  - ERECTILE DYSFUNCTION [None]
  - KETOACIDOSIS [None]
  - PANCREATITIS [None]
